FAERS Safety Report 11807360 (Version 1)
Quarter: 2015Q4

REPORT INFORMATION
  Report Type: Spontaneous
  Country: CA (occurrence: CA)
  Receive Date: 20151207
  Receipt Date: 20151207
  Transmission Date: 20160305
  Serious: Yes (Hospitalization, Other)
  Sender: FDA-Public Use
  Company Number: CA-JNJFOC-20151203695

PATIENT
  Sex: Male
  Weight: 71.2 kg

DRUGS (3)
  1. XARELTO [Suspect]
     Active Substance: RIVAROXABAN
     Indication: PRODUCT USED FOR UNKNOWN INDICATION
     Route: 048
  2. REMICADE [Concomitant]
     Active Substance: INFLIXIMAB
     Indication: CROHN^S DISEASE
     Route: 065
     Dates: start: 20150625
  3. FRAGMIN [Concomitant]
     Active Substance: DALTEPARIN SODIUM
     Route: 065

REACTIONS (3)
  - Gastrointestinal haemorrhage [Unknown]
  - Pulmonary embolism [Unknown]
  - Chest pain [Unknown]
